FAERS Safety Report 4658329-8 (Version None)
Quarter: 2005Q2

REPORT INFORMATION
  Report Type: 
  Country: None (occurrence: None)
  Receive Date: 20050509
  Receipt Date: 20050502
  Transmission Date: 20051028
  Serious: Yes (Other)
  Sender: FDA-Public Use
  Company Number: 2005069108

PATIENT
  Sex: Female
  Weight: 68.0396 kg

DRUGS (3)
  1. LIPITOR [Suspect]
     Indication: BLOOD CHOLESTEROL INCREASED
     Dosage: 10 MG (10 MG, 1 IN 1 D) ORAL
     Route: 048
  2. DICLOFENAC SODIUM [Suspect]
     Indication: ARTHRALGIA
  3. DRUG, UNSPECIFIED [Concomitant]

REACTIONS (10)
  - ARTHRALGIA [None]
  - BACK PAIN [None]
  - HYPOAESTHESIA [None]
  - KNEE ARTHROPLASTY [None]
  - LIVER DISORDER [None]
  - MYOCARDIAL INFARCTION [None]
  - NECK PAIN [None]
  - PAIN [None]
  - PAIN IN EXTREMITY [None]
  - SHOULDER PAIN [None]
